FAERS Safety Report 25941510 (Version 2)
Quarter: 2025Q4

REPORT INFORMATION
  Report Type: Spontaneous
  Country: US (occurrence: US)
  Receive Date: 20251020
  Receipt Date: 20251107
  Transmission Date: 20260117
  Serious: Yes (Other)
  Sender: NOVO NORDISK
  Company Number: US-NOVOPROD-1541478

PATIENT
  Age: 62 Year
  Sex: Female

DRUGS (3)
  1. WEGOVY [Suspect]
     Active Substance: SEMAGLUTIDE
     Indication: Weight control
     Dosage: 2.4 MG ONCE WEEKLY
     Route: 058
     Dates: start: 202412, end: 20250727
  2. WEGOVY [Suspect]
     Active Substance: SEMAGLUTIDE
     Dosage: 2.4 MG ONCE WEEKLY
     Route: 058
     Dates: start: 20251004
  3. WEGOVY [Suspect]
     Active Substance: SEMAGLUTIDE
     Indication: Type 1 diabetes mellitus
     Dosage: 2.4 MG ONCE WEEKLY
     Route: 058
     Dates: start: 20250808

REACTIONS (28)
  - Shoulder operation [Unknown]
  - Syncope [Recovered/Resolved]
  - Tremor [Recovered/Resolved]
  - Blood pressure increased [Recovered/Resolved]
  - Bedridden [Recovering/Resolving]
  - Blood pressure increased [Recovered/Resolved]
  - Vertigo [Recovered/Resolved]
  - Tinnitus [Not Recovered/Not Resolved]
  - Chills [Recovering/Resolving]
  - Tremor [Recovering/Resolving]
  - Vertigo [Recovered/Resolved]
  - Hyperhidrosis [Recovered/Resolved]
  - Food aversion [Not Recovered/Not Resolved]
  - Chills [Recovered/Resolved]
  - Headache [Recovered/Resolved]
  - Dizziness [Recovered/Resolved]
  - Nausea [Recovered/Resolved]
  - Heart rate increased [Recovered/Resolved]
  - Headache [Recovered/Resolved]
  - Abdominal pain upper [Recovered/Resolved]
  - Vomiting [Recovered/Resolved]
  - Nausea [Not Recovered/Not Resolved]
  - Vomiting [Recovered/Resolved]
  - Abdominal pain upper [Recovered/Resolved]
  - Dizziness [Not Recovered/Not Resolved]
  - Fatigue [Not Recovered/Not Resolved]
  - Heart rate increased [Recovering/Resolving]
  - Off label use [Unknown]

NARRATIVE: CASE EVENT DATE: 20250731
